FAERS Safety Report 10168996 (Version 2)
Quarter: 2014Q2

REPORT INFORMATION
  Report Type: Spontaneous
  Country: US (occurrence: None)
  Receive Date: 20140509
  Receipt Date: 20140515
  Transmission Date: 20141212
  Serious: Yes (Hospitalization, Other)
  Sender: FDA-Public Use
  Company Number: UTC-046348

PATIENT
  Age: 72 Year
  Sex: Female
  Weight: 74.38 kg

DRUGS (4)
  1. REMODULIN [Suspect]
     Indication: PULMONARY ARTERIAL HYPERTENSION
     Dosage: 0.094 UG/KG/MIN (0.094 UG/KG 1 IN 1 MIN, INTRAVENOUS DRIP
     Route: 041
     Dates: start: 20130220
  2. ADCIRCA (TADALAFIL) [Concomitant]
  3. REVATIO (SILDENAFIL CITRATE) [Concomitant]
  4. FLOLAN (EPOPROSTENOL) [Concomitant]

REACTIONS (6)
  - Loss of consciousness [None]
  - Injection site haemorrhage [None]
  - Drug dose omission [None]
  - Dyspnoea [None]
  - Device leakage [None]
  - Device breakage [None]
